FAERS Safety Report 9098311 (Version 2)
Quarter: 2013Q1

REPORT INFORMATION
  Report Type: Spontaneous
  Country: US (occurrence: US)
  Receive Date: 20130213
  Receipt Date: 20130312
  Transmission Date: 20140127
  Serious: Yes (Other)
  Sender: FDA-Public Use
  Company Number: PHHY2013US012893

PATIENT
  Age: 70 Year
  Sex: Male

DRUGS (1)
  1. BUFFERIN REGULAR STRENGTH [Suspect]
     Indication: CARDIOVASCULAR EVENT PROPHYLAXIS
     Dosage: 2 DF, DAILY
     Route: 048
     Dates: start: 1988

REACTIONS (2)
  - Deafness [Not Recovered/Not Resolved]
  - Incorrect dose administered [Not Recovered/Not Resolved]
